FAERS Safety Report 6786281-8 (Version None)
Quarter: 2010Q2

REPORT INFORMATION
  Report Type: 
  Country: None (occurrence: None)
  Receive Date: 20100623
  Receipt Date: 20100622
  Transmission Date: 20101027
  Serious: Yes (Other)
  Sender: FDA-Public Use
  Company Number: CA-ROCHE-708772

PATIENT
  Sex: Female

DRUGS (5)
  1. PEGASYS [Suspect]
     Indication: HEPATITIS C
     Route: 058
     Dates: start: 20100205, end: 20100424
  2. PEGASYS [Suspect]
     Route: 058
  3. RIBAVIRIN [Suspect]
     Indication: HEPATITIS C
     Route: 048
     Dates: start: 20100205, end: 20100424
  4. RIBAVIRIN [Suspect]
     Dosage: DOSE DECREASED
     Route: 048
  5. RIBAVIRIN [Suspect]
     Dosage: DOSE INCREASED
     Route: 048
     Dates: start: 20100101

REACTIONS (5)
  - DEHYDRATION [None]
  - GASTRITIS [None]
  - HAEMOGLOBIN DECREASED [None]
  - NAUSEA [None]
  - VOMITING [None]
